FAERS Safety Report 5794083-4 (Version None)
Quarter: 2008Q2

REPORT INFORMATION
  Report Type: 
  Country: None (occurrence: None)
  Receive Date: 20080627
  Receipt Date: 20080616
  Transmission Date: 20081010
  Serious: Yes (Hospitalization)
  Sender: FDA-Public Use
  Company Number: GB-PFIZER INC-2008045143

PATIENT
  Sex: Female
  Weight: 70 kg

DRUGS (6)
  1. CHANTIX [Suspect]
     Indication: SMOKING CESSATION THERAPY
     Route: 048
     Dates: start: 20080429, end: 20080510
  2. WARFARIN SODIUM [Concomitant]
     Route: 048
  3. ACETAMINOPHEN W/ CODEINE [Concomitant]
     Route: 048
     Dates: start: 20020101
  4. ASPIRIN [Concomitant]
     Route: 048
     Dates: start: 20020101
  5. ADIZEM [Concomitant]
     Route: 048
     Dates: start: 20050101
  6. EZETIMIBE [Concomitant]
     Route: 048
     Dates: start: 20060101

REACTIONS (2)
  - CARDIOVASCULAR DISORDER [None]
  - SENSORY LOSS [None]
